FAERS Safety Report 7706614-5 (Version None)
Quarter: 2011Q3

REPORT INFORMATION
  Report Type: 
  Country: None (occurrence: None)
  Receive Date: 20110824
  Receipt Date: 20110812
  Transmission Date: 20111222
  Serious: Yes (Hospitalization, Other)
  Sender: FDA-Public Use
  Company Number: JP-CELGENEUS-087-21880-11012295

PATIENT
  Sex: Male
  Weight: 47 kg

DRUGS (15)
  1. MAGMITT [Concomitant]
     Indication: MULTIPLE MYELOMA
     Dosage: 500 MILLIGRAM
     Route: 048
     Dates: start: 20101028, end: 20101125
  2. REVLIMID [Suspect]
     Dosage: 10 MILLIGRAM
     Route: 048
     Dates: start: 20101126, end: 20101216
  3. REVLIMID [Suspect]
     Dosage: 10 MILLIGRAM
     Route: 048
     Dates: start: 20101224, end: 20110113
  4. DEXAMETHASONE [Suspect]
     Dosage: 20 MILLIGRAM
     Route: 048
     Dates: start: 20101126, end: 20110114
  5. VOLTAREN [Concomitant]
     Indication: MULTIPLE MYELOMA
     Dosage: 3 TABLET
     Route: 048
     Dates: start: 20101028, end: 20101125
  6. ASPIRIN [Concomitant]
     Indication: PROPHYLAXIS
     Dosage: 100 MILLIGRAM
     Route: 048
     Dates: start: 20101028, end: 20101125
  7. DEXAMETHASONE [Suspect]
     Dosage: 20 MILLIGRAM
     Route: 048
     Dates: start: 20110121, end: 20110128
  8. PRAVASTATIN SODIUM [Concomitant]
     Dosage: 10 MILLIGRAM
     Route: 048
     Dates: start: 20101028, end: 20101125
  9. REVLIMID [Suspect]
     Indication: MULTIPLE MYELOMA
     Dosage: 10 MILLIGRAM
     Route: 048
     Dates: start: 20101028, end: 20101109
  10. DEXAMETHASONE [Suspect]
     Indication: MULTIPLE MYELOMA
     Dosage: 20 MILLIGRAM
     Route: 048
     Dates: start: 20101029, end: 20101106
  11. DAI-KENCHU-TO [Concomitant]
     Indication: PROPHYLAXIS
     Dosage: 7.5 GRAM
     Route: 048
     Dates: start: 20101028, end: 20101125
  12. RABEPRAZOLE SODIUM [Concomitant]
     Indication: PROPHYLAXIS
     Dosage: 10 MILLIGRAM
     Route: 048
     Dates: start: 20101028, end: 20101125
  13. REVLIMID [Suspect]
     Route: 048
     Dates: start: 20110121, end: 20110131
  14. SULFAMETHOXAZOLE [Concomitant]
     Indication: PROPHYLAXIS
     Dosage: 1 GRAM
     Route: 048
     Dates: start: 20101028, end: 20101125
  15. LEVOFLOXACIN [Concomitant]
     Indication: PSOAS ABSCESS
     Dosage: 500 MILLIGRAM
     Route: 048
     Dates: start: 20101028, end: 20101125

REACTIONS (4)
  - WHITE BLOOD CELL COUNT DECREASED [None]
  - B-CELL LYMPHOMA [None]
  - HEPATIC FUNCTION ABNORMAL [None]
  - PLATELET COUNT DECREASED [None]
